FAERS Safety Report 11289500 (Version 1)
Quarter: 2015Q3

REPORT INFORMATION
  Report Type: Spontaneous
  Country: US (occurrence: US)
  Receive Date: 20150721
  Receipt Date: 20150721
  Transmission Date: 20151125
  Serious: Yes (Hospitalization, Other)
  Sender: FDA-Public Use
  Company Number: US-UNITED THERAPEUTICS-UNT-2015-008107

PATIENT
  Age: 63 Year
  Sex: Female
  Weight: 79.37 kg

DRUGS (1)
  1. REMODULIN [Suspect]
     Active Substance: TREPROSTINIL
     Indication: PULMONARY HYPERTENSION
     Dosage: 0.021 ?G/KG/MIN, CONTINUING
     Route: 041
     Dates: start: 20141003

REACTIONS (9)
  - Injection site discharge [Unknown]
  - Syncope [Recovered/Resolved]
  - Flushing [Recovered/Resolved]
  - Injection site erythema [Unknown]
  - Accidental overdose [Unknown]
  - Device related sepsis [Recovered/Resolved]
  - Injection site oedema [Unknown]
  - Injection site pain [Unknown]
  - Injection site urticaria [Recovered/Resolved]

NARRATIVE: CASE EVENT DATE: 20150701
